FAERS Safety Report 7949667-1 (Version None)
Quarter: 2011Q4

REPORT INFORMATION
  Report Type: 
  Country: None (occurrence: None)
  Receive Date: 20111130
  Receipt Date: 20111122
  Transmission Date: 20120403
  Serious: Yes (Hospitalization, Other)
  Sender: FDA-Public Use
  Company Number: US-ACTELION-A-NJ2011-46439

PATIENT

DRUGS (2)
  1. TRACLEER [Suspect]
     Indication: PULMONARY ARTERIAL HYPERTENSION
     Dosage: UNK
     Route: 048
     Dates: start: 20070313
  2. CALCIUM CHANNEL BLOCKERS [Concomitant]

REACTIONS (5)
  - HYPOTENSION [None]
  - ANAEMIA [None]
  - DIALYSIS [None]
  - DIZZINESS [None]
  - TRANSFUSION [None]
